FAERS Safety Report 7955190-0 (Version None)
Quarter: 2011Q4

REPORT INFORMATION
  Report Type: 
  Country: None (occurrence: None)
  Receive Date: 20111202
  Receipt Date: 20111129
  Transmission Date: 20120403
  Serious: Yes (Life-Threatening, Other)
  Sender: FDA-Public Use
  Company Number: PHHY2011BR67497

PATIENT
  Sex: Female

DRUGS (8)
  1. MECLOZINE HYDROCHLORIDE [Concomitant]
     Indication: LABYRINTHITIS
     Dosage: 1 DF, DAILY
     Route: 048
     Dates: start: 20110901
  2. ENALAPRIL MALEATE [Concomitant]
     Indication: HYPERTENSION
     Dosage: 1 DF, DAILY
     Route: 048
     Dates: start: 20110701
  3. FLUOXETINE [Concomitant]
     Indication: ANXIETY
     Dosage: 4 DF, (20MG) DAILY
     Route: 048
     Dates: start: 20090101
  4. ZOLPIDEM [Concomitant]
     Indication: INSOMNIA
     Dosage: 10 MG, DAILY
     Route: 048
     Dates: start: 20090101
  5. BETAHISTINE HYDROCHLORIDE [Concomitant]
     Indication: LABYRINTHITIS
     Dosage: 1 DF, DAILY
     Route: 048
     Dates: start: 20110901
  6. RASILEZ (ALISKIREN) [Concomitant]
     Indication: HYPERTENSION
     Dosage: 1 DF, (300/12.5MG) DAILY
     Route: 048
     Dates: start: 20100101
  7. DIOVAN [Suspect]
     Indication: HYPERTENSION
     Dosage: 320 MG, DAILY
     Dates: start: 20060101
  8. INDAPAMIDE [Concomitant]
     Indication: HYPERTENSION
     Dosage: 1 DF, DAILY
     Route: 048
     Dates: start: 20040101

REACTIONS (5)
  - INCORRECT DOSE ADMINISTERED [None]
  - DRUG DOSE OMISSION [None]
  - BLOOD PRESSURE INCREASED [None]
  - LABYRINTHITIS [None]
  - FEELING ABNORMAL [None]
